FAERS Safety Report 4915199-8 (Version None)
Quarter: 2006Q1

REPORT INFORMATION
  Report Type: 
  Country: None (occurrence: None)
  Receive Date: 20060216
  Receipt Date: 20060216
  Transmission Date: 20060701
  Serious: Yes (Hospitalization)
  Sender: FDA-Public Use
  Company Number: None

PATIENT
  Sex: Male
  Weight: 83.9154 kg

DRUGS (5)
  1. COUMADIN [Suspect]
     Indication: ATRIAL FIBRILLATION
     Dosage: PO PRIOR TO ADMISSION
     Route: 048
  2. COREG [Concomitant]
  3. RENAGEL [Concomitant]
  4. FOLIC ACID [Concomitant]
  5. PROZAC [Concomitant]

REACTIONS (1)
  - HAEMATURIA [None]
